FAERS Safety Report 19745505 (Version 1)
Quarter: 2021Q3

REPORT INFORMATION
  Report Type: Spontaneous
  Country: FR (occurrence: FR)
  Receive Date: 20210825
  Receipt Date: 20210825
  Transmission Date: 20211014
  Serious: Yes (Hospitalization)
  Sender: FDA-Public Use
  Company Number: FR-TEVA-2021-FR-1944997

PATIENT
  Age: 47 Year
  Sex: Male
  Weight: 92 kg

DRUGS (17)
  1. SULFATE DE VINCRISTINE [Suspect]
     Active Substance: VINCRISTINE SULFATE
     Indication: HODGKIN^S DISEASE
     Dosage: 2MG ON D8
     Route: 041
     Dates: start: 20210629, end: 20210629
  2. ETOPOSIDE. [Suspect]
     Active Substance: ETOPOSIDE
     Dosage: 400MG ON D1
     Route: 041
     Dates: start: 20210713, end: 20210713
  3. PREDNISONE. [Suspect]
     Active Substance: PREDNISONE
     Indication: HODGKIN^S DISEASE
     Dosage: 80 MILLIGRAM DAILY; FOR 6 DAYS
     Route: 048
     Dates: start: 20210714, end: 20210719
  4. PREDNISONE. [Suspect]
     Active Substance: PREDNISONE
     Dosage: 80 MILLIGRAM DAILY; FOR 11 DAYS
     Route: 048
     Dates: start: 20210623, end: 20210628
  5. BLEOMYCINE [Suspect]
     Active Substance: BLEOMYCIN SULFATE
     Indication: HODGKIN^S DISEASE
     Dosage: 20 MG ON D8
     Route: 041
     Dates: start: 20210629, end: 20210629
  6. METHYLPREDNISOLONE. [Suspect]
     Active Substance: METHYLPREDNISOLONE
     Dosage: 80MG ON D1
     Route: 041
     Dates: start: 20210713, end: 20210713
  7. ETOPOSIDE. [Suspect]
     Active Substance: ETOPOSIDE
     Indication: HODGKIN^S DISEASE
     Dosage: 400 MILLIGRAM DAILY; 200MG TWICE A DAY ON D2 AND D3
     Route: 048
     Dates: start: 20210714, end: 20210715
  8. ETOPOSIDE. [Suspect]
     Active Substance: ETOPOSIDE
     Dosage: 400MG ON D1
     Route: 041
     Dates: start: 20210622, end: 20210622
  9. ENDOXAN [Suspect]
     Active Substance: CYCLOPHOSPHAMIDE
     Indication: HODGKIN^S DISEASE
     Dosage: 2500MG
     Route: 041
     Dates: start: 20210713, end: 20210713
  10. CHLORHYDRATE DE DOXORUBICINE [Suspect]
     Active Substance: DOXORUBICIN HYDROCHLORIDE
     Indication: HODGKIN^S DISEASE
     Dosage: 70MG
     Route: 041
     Dates: start: 20210713, end: 20210713
  11. CHLORHYDRATE DE DOXORUBICINE [Suspect]
     Active Substance: DOXORUBICIN HYDROCHLORIDE
     Dosage: 70MG
     Route: 041
     Dates: start: 20210622, end: 20210622
  12. PROCARBAZINE [Suspect]
     Active Substance: PROCARBAZINE
     Dosage: 200 MILLIGRAM DAILY; FOR 7 DAYS
     Route: 048
     Dates: start: 20210714, end: 20210720
  13. ETOPOSIDE. [Suspect]
     Active Substance: ETOPOSIDE
     Dosage: 200MG TWICE A DAY ON D2 AND D3, 800 MG
     Route: 048
     Dates: start: 20210623, end: 20210624
  14. METHYLPREDNISOLONE. [Suspect]
     Active Substance: METHYLPREDNISOLONE
     Indication: HODGKIN^S DISEASE
     Dosage: 80MG ON D1
     Route: 041
     Dates: start: 20210622, end: 20210622
  15. PROCARBAZINE [Suspect]
     Active Substance: PROCARBAZINE
     Indication: HODGKIN^S DISEASE
     Dosage: 200 MILLIGRAM DAILY; FOR 7 DAYS
     Route: 048
     Dates: start: 20210623, end: 20210629
  16. ENDOXAN [Suspect]
     Active Substance: CYCLOPHOSPHAMIDE
     Dosage: 2500MG
     Route: 041
     Dates: start: 20210622, end: 20210622
  17. COMIRNATY [Suspect]
     Active Substance: TOZINAMERAN
     Indication: COVID-19 IMMUNISATION
     Dosage: 1 DF, DISPERSION TO BE DILUTED FOR INJECTION
     Route: 030
     Dates: start: 20210614, end: 20210614

REACTIONS (2)
  - Myocardial infarction [Recovering/Resolving]
  - Coronary artery thrombosis [Recovering/Resolving]

NARRATIVE: CASE EVENT DATE: 20210719
